FAERS Safety Report 18821482 (Version 4)
Quarter: 2021Q2

REPORT INFORMATION
  Report Type: Spontaneous
  Country: IN (occurrence: IN)
  Receive Date: 20210201
  Receipt Date: 20210408
  Transmission Date: 20210717
  Serious: Yes (Hospitalization, Other)
  Sender: FDA-Public Use
  Company Number: IN-PFIZER INC-2020011637

PATIENT
  Age: 57 Year
  Sex: Male

DRUGS (3)
  1. PALBACE [Suspect]
     Active Substance: PALBOCICLIB
     Indication: BREAST CANCER METASTATIC
     Dosage: 125 MG, CYCLIC (ONCE DAILY 3 WEEKS ON AND 7 DAYS OFF)
     Route: 048
     Dates: start: 20200109
  2. ZOFER [Concomitant]
     Active Substance: ONDANSETRON HYDROCHLORIDE
     Indication: VOMITING
     Dosage: 8 MG, AS NEEDED
  3. ATIVAN [Concomitant]
     Active Substance: LORAZEPAM
     Dosage: 1 MG, AT BED TIME

REACTIONS (11)
  - Pulmonary fibrosis [Unknown]
  - Blood pressure increased [Unknown]
  - Pneumonia [Recovered/Resolved]
  - Liposarcoma [Unknown]
  - Anaemia [Unknown]
  - Pulmonary mass [Unknown]
  - White blood cell count decreased [Unknown]
  - Off label use [Unknown]
  - Second primary malignancy [Unknown]
  - Monocyte percentage increased [Unknown]
  - Neutrophil count decreased [Unknown]

NARRATIVE: CASE EVENT DATE: 20200303
